FAERS Safety Report 21144605 (Version 4)
Quarter: 2023Q1

REPORT INFORMATION
  Report Type: Report from Study
  Country: US (occurrence: US)
  Receive Date: 20220728
  Receipt Date: 20230306
  Transmission Date: 20230417
  Serious: Yes (Death)
  Sender: FDA-Public Use
  Company Number: US-002147023-NVSC2022US170864

PATIENT
  Age: 74 Year
  Sex: Female

DRUGS (1)
  1. LEQVIO [Suspect]
     Active Substance: INCLISIRAN SODIUM
     Indication: Arteriosclerosis
     Dosage: 284 MG, OTHER
     Route: 058
     Dates: start: 20220620

REACTIONS (6)
  - Ventricular fibrillation [Fatal]
  - Arthritis [Unknown]
  - Malaise [Unknown]
  - Arthralgia [Unknown]
  - Gout [Unknown]
  - Feeling abnormal [Unknown]

NARRATIVE: CASE EVENT DATE: 20220620
